FAERS Safety Report 5936114-4 (Version None)
Quarter: 2008Q4

REPORT INFORMATION
  Report Type: 
  Country: None (occurrence: None)
  Receive Date: 20081030
  Receipt Date: 20081021
  Transmission Date: 20090506
  Serious: Yes (Disabling)
  Sender: FDA-Public Use
  Company Number: GB-PFIZER INC-2008078362

PATIENT
  Sex: Male
  Weight: 76 kg

DRUGS (1)
  1. CAMPTOSAR [Suspect]
     Indication: RECTAL CANCER METASTATIC
     Route: 042
     Dates: start: 20080509, end: 20080919

REACTIONS (1)
  - NEUROPATHY PERIPHERAL [None]
